FAERS Safety Report 12912734 (Version 2)
Quarter: 2016Q4

REPORT INFORMATION
  Report Type: Spontaneous
  Country: JP (occurrence: JP)
  Receive Date: 20161104
  Receipt Date: 20161123
  Transmission Date: 20170207
  Serious: Yes (Hospitalization, Other)
  Sender: FDA-Public Use
  Company Number: JP-PFIZER INC-2016510986

PATIENT
  Age: 76 Year
  Sex: Male

DRUGS (2)
  1. CELECOX [Suspect]
     Active Substance: CELECOXIB
     Dosage: 100 MG, TWICE DAILY, MORNING AND EVENING
     Route: 048
  2. MICARDIS [Suspect]
     Active Substance: TELMISARTAN
     Indication: BLOOD PRESSURE MANAGEMENT
     Dosage: 40 MG, ONCE DAILY, MORNING
     Route: 048

REACTIONS (1)
  - Interstitial lung disease [Unknown]
